FAERS Safety Report 4707904-0 (Version None)
Quarter: 2005Q2

REPORT INFORMATION
  Report Type: 
  Country: None (occurrence: None)
  Receive Date: 20050629
  Receipt Date: 20050316
  Transmission Date: 20051028
  Serious: No
  Sender: FDA-Public Use
  Company Number: 05P-163-0294526-00

PATIENT
  Age: 57 Year
  Sex: Female
  Weight: 77.1115 kg

DRUGS (5)
  1. HUMIRA [Suspect]
     Indication: RHEUMATOID ARTHRITIS
     Dosage: 40 MG, 1 IN 2 WK, SUBCUTANEOUS
     Route: 058
     Dates: start: 20050129, end: 20050212
  2. CELECOXIB [Concomitant]
  3. ACETAMINOPHEN [Concomitant]
  4. METHOTREXATE SODIUM [Concomitant]
  5. FOLIC ACID [Concomitant]

REACTIONS (9)
  - DYSMENORRHOEA [None]
  - ERYTHEMA [None]
  - GENITAL RASH [None]
  - METRORRHAGIA [None]
  - PRURITUS [None]
  - STOMATITIS [None]
  - SWELLING FACE [None]
  - VAGINAL DISCHARGE [None]
  - VULVAL ERYTHEMA [None]
